FAERS Safety Report 15736252 (Version 5)
Quarter: 2019Q2

REPORT INFORMATION
  Report Type: Spontaneous
  Country: US (occurrence: US)
  Receive Date: 20181218
  Receipt Date: 20190515
  Transmission Date: 20190711
  Serious: No
  Sender: FDA-Public Use
  Company Number: US-PFIZER INC-2018516151

PATIENT
  Age: 71 Year
  Sex: Female
  Weight: 81 kg

DRUGS (3)
  1. IBRANCE [Suspect]
     Active Substance: PALBOCICLIB
     Dosage: 125 MG, CYCLIC (DAILY FOR 14 DAYS THEN STOP FOR 7 DAYS)
     Route: 048
     Dates: start: 201902, end: 2019
  2. IBRANCE [Suspect]
     Active Substance: PALBOCICLIB
     Indication: BREAST CANCER METASTATIC
     Dosage: 125 MG, CYCLIC (21 DAYS)
     Route: 048
     Dates: start: 201809, end: 2018
  3. GLIPIZIDE. [Concomitant]
     Active Substance: GLIPIZIDE
     Indication: DIABETES MELLITUS
     Dosage: 2.5 MG, 2X/DAY (TAKE 2.5 TABLETS IN THE MORNING AND 2.5 TABLETS IN THE EVENING BEFORE DINNER DAILY)

REACTIONS (2)
  - White blood cell count decreased [Unknown]
  - Hypoacusis [Unknown]

NARRATIVE: CASE EVENT DATE: 2018
